FAERS Safety Report 24591297 (Version 1)
Quarter: 2024Q4

REPORT INFORMATION
  Report Type: Report from Study
  Country: ES (occurrence: ES)
  Receive Date: 20241108
  Receipt Date: 20241108
  Transmission Date: 20250114
  Serious: Yes (Other)
  Sender: ACCORD
  Company Number: ES-EMA-DD-20241011-7482661-043752

PATIENT
  Age: 48 Year
  Sex: Male

DRUGS (4)
  1. MYCOPHENOLATE MOFETIL [Suspect]
     Active Substance: MYCOPHENOLATE MOFETIL
     Indication: Product used for unknown indication
     Dosage: 1000 MILLIGRAM DAILY; MAINTENANCE DOSE; MONOTHERAPY
  2. PREDNISONE [Suspect]
     Active Substance: PREDNISONE
     Indication: Nephrotic syndrome
     Dosage: 10MG/DAY IN COMBINATION WITH MYCOPHENOLATE MOFETIL 1000MG/12 HOURS
  3. PREDNISONE [Suspect]
     Active Substance: PREDNISONE
     Indication: Nephrotic syndrome
     Dosage: 1 MG/KG, QD
  4. MYCOPHENOLATE MOFETIL [Suspect]
     Active Substance: MYCOPHENOLATE MOFETIL
     Indication: Nephrotic syndrome
     Dosage: IN COMBINATION WITH PREDNISONE 10MG/DAY

REACTIONS (2)
  - Diabetes mellitus [Unknown]
  - Colorectal cancer [Unknown]
